FAERS Safety Report 16933498 (Version 3)
Quarter: 2020Q4

REPORT INFORMATION
  Report Type: Spontaneous
  Country: CA (occurrence: CA)
  Receive Date: 20191018
  Receipt Date: 20201116
  Transmission Date: 20210113
  Serious: Yes (Other)
  Sender: FDA-Public Use
  Company Number: CA-BEH-2019108228

PATIENT
  Age: 52 Year
  Sex: Female

DRUGS (1)
  1. PRIVIGEN [Suspect]
     Active Substance: HUMAN IMMUNOGLOBULIN G
     Dosage: 20 GRAM (1 VIAL), TOT
     Route: 065
     Dates: start: 20191003, end: 20191003

REACTIONS (4)
  - Pneumonia [Unknown]
  - Pyrexia [Unknown]
  - Chills [Unknown]
  - Haemolysis [Recovered/Resolved]

NARRATIVE: CASE EVENT DATE: 20191003
